FAERS Safety Report 6475823-8 (Version None)
Quarter: 2009Q4

REPORT INFORMATION
  Report Type: 
  Country: None (occurrence: None)
  Receive Date: 20091119
  Receipt Date: 20091030
  Transmission Date: 20100525
  Serious: Yes (Other)
  Sender: FDA-Public Use
  Company Number: 2009SP034019

PATIENT
  Age: 21 Year
  Sex: Female
  Weight: 69.4003 kg

DRUGS (3)
  1. IMPLANON [Suspect]
     Indication: DRUG USE FOR UNKNOWN INDICATION
     Dosage: 1 DF;
     Dates: start: 20080331
  2. BACTRIM [Concomitant]
  3. PREDNISONE [Concomitant]

REACTIONS (1)
  - CELLULITIS [None]
